FAERS Safety Report 19424108 (Version 3)
Quarter: 2021Q2

REPORT INFORMATION
  Report Type: Spontaneous
  Country: US (occurrence: US)
  Receive Date: 20210616
  Receipt Date: 20210617
  Transmission Date: 20210717
  Serious: Yes (Other)
  Sender: FDA-Public Use
  Company Number: US-SA-2021SA196422

PATIENT
  Age: 19 Year
  Sex: Female

DRUGS (1)
  1. DUPIXENT [Suspect]
     Active Substance: DUPILUMAB
     Indication: ASTHMA
     Dosage: 300 MG, QOW
     Route: 058
     Dates: start: 202006

REACTIONS (11)
  - Injection site pain [Recovering/Resolving]
  - Alopecia [Recovering/Resolving]
  - Product use issue [Unknown]
  - Injection site erythema [Recovering/Resolving]
  - Therapeutic response shortened [Unknown]
  - Croup infectious [Recovering/Resolving]
  - Middle insomnia [Unknown]
  - Injection site swelling [Recovering/Resolving]
  - Sinusitis [Recovering/Resolving]
  - Decreased activity [Unknown]
  - Oropharyngeal pain [Recovering/Resolving]

NARRATIVE: CASE EVENT DATE: 202006
